FAERS Safety Report 19920814 (Version 1)
Quarter: 2021Q4

REPORT INFORMATION
  Report Type: Spontaneous
  Country: US (occurrence: US)
  Receive Date: 20211005
  Receipt Date: 20211005
  Transmission Date: 20220304
  Serious: No
  Sender: FDA-Public Use
  Company Number: US-ADAMAS PHARMA, LLC-2020ADA02435

PATIENT
  Age: 70 Year
  Sex: Female
  Weight: 51.7 kg

DRUGS (10)
  1. GOCOVRI [Suspect]
     Active Substance: AMANTADINE
     Indication: Dyskinesia
     Dosage: 137 MG, 1X/DAY AT BEDTIME FOR 7 DAYS
     Route: 048
     Dates: start: 20201006, end: 20201013
  2. ASPIRIN [Concomitant]
     Active Substance: ASPIRIN
  3. LINZESS [Concomitant]
     Active Substance: LINACLOTIDE
  4. CALCIUM [Concomitant]
     Active Substance: CALCIUM
  5. PANTOPRAZOLE [Concomitant]
     Active Substance: PANTOPRAZOLE
  6. METOPROLOL TARTRATE [Concomitant]
     Active Substance: METOPROLOL TARTRATE
  7. FLECAINIDE [Concomitant]
     Active Substance: FLECAINIDE
  8. CARBIDOPA\LEVODOPA [Concomitant]
     Active Substance: CARBIDOPA\LEVODOPA
  9. AMLODIPINE [Concomitant]
     Active Substance: AMLODIPINE BESYLATE
  10. AZILECT [Concomitant]
     Active Substance: RASAGILINE MESYLATE

REACTIONS (3)
  - Dyskinesia [Recovered/Resolved]
  - Drug ineffective [Recovered/Resolved]
  - Unevaluable event [Recovered/Resolved]

NARRATIVE: CASE EVENT DATE: 20201006
